FAERS Safety Report 8344413-4 (Version None)
Quarter: 2012Q2

REPORT INFORMATION
  Report Type: 
  Country: None (occurrence: None)
  Receive Date: 20120508
  Receipt Date: 20120501
  Transmission Date: 20120825
  Serious: Yes (Other)
  Sender: FDA-Public Use
  Company Number: US-ROCHE-1064957

PATIENT
  Sex: Female

DRUGS (6)
  1. ACTEMRA [Suspect]
     Dates: start: 20120315
  2. ACTEMRA [Suspect]
     Dates: start: 20120215
  3. ACTEMRA [Suspect]
     Indication: RHEUMATOID ARTHRITIS
     Route: 042
     Dates: start: 20120115
  4. ACTEMRA [Suspect]
     Dates: start: 20120415
  5. OXYCODONE HCL [Concomitant]
     Indication: SURGERY
  6. LYRICA [Concomitant]

REACTIONS (2)
  - VIITH NERVE PARALYSIS [None]
  - MIGRAINE [None]
